FAERS Safety Report 14337282 (Version 2)
Quarter: 2018Q1

REPORT INFORMATION
  Report Type: Spontaneous
  Country: EE (occurrence: EE)
  Receive Date: 20171229
  Receipt Date: 20180116
  Transmission Date: 20180509
  Serious: Yes (Hospitalization, Other)
  Sender: FDA-Public Use
  Company Number: PHHY2017EE192741

PATIENT
  Age: 70 Year
  Sex: Female
  Weight: 70 kg

DRUGS (24)
  1. LYRICA [Concomitant]
     Active Substance: PREGABALIN
     Indication: PAIN
     Route: 065
  2. TASIGNA [Suspect]
     Active Substance: NILOTINIB
     Indication: CHRONIC MYELOID LEUKAEMIA
     Dosage: 200 MG, QD
     Route: 048
     Dates: start: 20091109, end: 20170531
  3. PARACETAMOL [Concomitant]
     Active Substance: ACETAMINOPHEN
     Indication: FEBRILE CONVULSION
     Dosage: UNK
     Route: 048
  4. FLUCONAZOLE. [Concomitant]
     Active Substance: FLUCONAZOLE
     Indication: CANDIDA INFECTION
     Dosage: UNK
     Route: 042
     Dates: start: 20170531
  5. LASIX [Concomitant]
     Active Substance: FUROSEMIDE
     Indication: POLYURIA
     Dosage: UNK
     Route: 042
  6. METOCLOPRAMIDE. [Concomitant]
     Active Substance: METOCLOPRAMIDE
     Dosage: 10 MG, UNK
     Route: 065
  7. PANTOPRAZOLE [Concomitant]
     Active Substance: PANTOPRAZOLE
     Indication: GASTROOESOPHAGEAL REFLUX DISEASE
     Dosage: 40 MG, QD
     Route: 048
  8. AUGMENTIN [Concomitant]
     Active Substance: AMOXICILLIN\CLAVULANATE POTASSIUM
     Indication: ANTIBIOTIC THERAPY
     Dosage: 2 G, QD
     Route: 048
  9. TIENAM [Concomitant]
     Active Substance: CILASTATIN SODIUM\IMIPENEM
     Indication: PNEUMONITIS
     Dosage: 5 MG, QID
     Route: 048
  10. VANCOMYCIN [Concomitant]
     Active Substance: VANCOMYCIN
     Indication: PNEUMONITIS
     Dosage: 1 G, BID
     Route: 065
  11. APO-K [Concomitant]
     Active Substance: POTASSIUM CHLORIDE
     Dosage: 600 MG, UNK
     Route: 065
     Dates: start: 20170529, end: 20170530
  12. TORSEMIDE. [Concomitant]
     Active Substance: TORSEMIDE
     Indication: PRODUCT USED FOR UNKNOWN INDICATION
     Dosage: UNK
     Route: 048
  13. PREDNIZOLON [Concomitant]
     Indication: PNEUMONITIS
  14. FLUCONAZOLE. [Concomitant]
     Active Substance: FLUCONAZOLE
     Dosage: 300 MG, UNK
     Route: 065
     Dates: start: 20170630
  15. L-THYROXINE [Concomitant]
     Active Substance: LEVOTHYROXINE
     Indication: HYPOTHYROIDISM
     Dosage: 50 UG, QD
     Route: 048
     Dates: start: 20170418
  16. FLUCONAZOLE. [Concomitant]
     Active Substance: FLUCONAZOLE
     Dosage: 400 MG, IV
     Route: 065
     Dates: start: 20170601, end: 20170611
  17. APO-K [Concomitant]
     Active Substance: POTASSIUM CHLORIDE
     Indication: ELECTROLYTE SUBSTITUTION THERAPY
     Dosage: UNK
     Route: 048
  18. KETONAL [Concomitant]
     Active Substance: KETOPROFEN
     Indication: INFECTION
     Dosage: 100 MG, UNK
     Route: 048
  19. PREDNIZOLON [Concomitant]
     Indication: HYPOPHYSITIS
     Dosage: 50 MG, QD
     Route: 048
     Dates: start: 20170531
  20. APO-K [Concomitant]
     Active Substance: POTASSIUM CHLORIDE
     Dosage: 1200 MG, X4/DIE
     Dates: end: 20170601
  21. HYDROCORTISONE. [Concomitant]
     Active Substance: HYDROCORTISONE
     Indication: PRODUCT USED FOR UNKNOWN INDICATION
     Dosage: 20 MG, BID
     Route: 065
     Dates: start: 20170701
  22. PANAGIN [Concomitant]
     Indication: PRODUCT USED FOR UNKNOWN INDICATION
     Dosage: 10 MG
     Route: 041
  23. TAZOCIN [Concomitant]
     Active Substance: PIPERACILLIN SODIUM\TAZOBACTAM SODIUM
     Indication: HYPOTHYROIDISM
     Dosage: 45 G, TID
     Route: 048
  24. METOCLOPRAMIDE. [Concomitant]
     Active Substance: METOCLOPRAMIDE
     Indication: NAUSEA
     Dosage: 10 UNK, UNK
     Route: 065

REACTIONS (17)
  - Pneumonitis [Recovered/Resolved]
  - Cholestasis [Recovered/Resolved]
  - Alanine aminotransferase increased [Unknown]
  - Ventricular extrasystoles [Unknown]
  - Gamma-glutamyltransferase increased [Unknown]
  - Hypophysitis [Recovered/Resolved]
  - Pulmonary oedema [Recovered/Resolved]
  - Candida infection [Recovered/Resolved]
  - Hypopituitarism [Recovering/Resolving]
  - Red blood cell sedimentation rate increased [Recovered/Resolved]
  - Head discomfort [Unknown]
  - Palpitations [Unknown]
  - Aspartate aminotransferase increased [Unknown]
  - Blood alkaline phosphatase increased [Unknown]
  - Pyrexia [Recovered/Resolved]
  - Rash [Recovered/Resolved]
  - Hepatic enzyme increased [Recovered/Resolved]

NARRATIVE: CASE EVENT DATE: 20170418
